FAERS Safety Report 11983347 (Version 1)
Quarter: 2016Q1

REPORT INFORMATION
  Report Type: Spontaneous
  Country: JP (occurrence: JP)
  Receive Date: 20160201
  Receipt Date: 20160201
  Transmission Date: 20160526
  Serious: Yes (Death, Other)
  Sender: FDA-Public Use
  Company Number: JP-MYLANLABS-2016M1003871

PATIENT

DRUGS (6)
  1. CISPLATIN. [Suspect]
     Active Substance: CISPLATIN
     Indication: NASOPHARYNGEAL CANCER
     Dosage: 60MG/M2 X 1 DAY
     Route: 065
  2. FLUOROURACIL. [Suspect]
     Active Substance: FLUOROURACIL
     Indication: NASOPHARYNGEAL CANCER
     Dosage: 600MG/M2 X 5 DAYS
     Route: 065
  3. CISPLATIN. [Suspect]
     Active Substance: CISPLATIN
     Dosage: 20MG/M2
     Route: 065
  4. DOCETAXEL. [Suspect]
     Active Substance: DOCETAXEL
     Dosage: 60MG/M2 X 1 DAY
     Route: 065
  5. LINEZOLID. [Suspect]
     Active Substance: LINEZOLID
     Indication: PNEUMONIA STAPHYLOCOCCAL
     Route: 065
  6. DOCETAXEL. [Suspect]
     Active Substance: DOCETAXEL
     Indication: NASOPHARYNGEAL CANCER
     Dosage: 10MG/M2
     Route: 065

REACTIONS (5)
  - Cytomegalovirus infection [Unknown]
  - Febrile neutropenia [Fatal]
  - Acute respiratory distress syndrome [Fatal]
  - Platelet count decreased [Unknown]
  - Staphylococcal infection [Fatal]
